FAERS Safety Report 5002539-7 (Version None)
Quarter: 2006Q2

REPORT INFORMATION
  Report Type: 
  Country: None (occurrence: None)
  Receive Date: 20060515
  Receipt Date: 20060126
  Transmission Date: 20061013
  Serious: Yes (Hospitalization)
  Sender: FDA-Public Use
  Company Number: US-MERCK-0601USA03584

PATIENT
  Age: 76 Year
  Sex: Male
  Weight: 82 kg

DRUGS (9)
  1. RELAFEN [Concomitant]
     Indication: PAIN
     Route: 065
     Dates: start: 20010406, end: 20020301
  2. VIOXX [Suspect]
     Indication: ARTHRITIS
     Route: 048
     Dates: start: 20010601, end: 20020501
  3. VIOXX [Suspect]
     Indication: JOINT INJURY
     Route: 048
     Dates: start: 20010601, end: 20020501
  4. LASIX [Concomitant]
     Indication: FLUID RETENTION
     Route: 065
     Dates: start: 20011001
  5. LASIX [Concomitant]
     Indication: HYPERTENSION
     Route: 065
     Dates: start: 20011001
  6. PREVACID [Concomitant]
     Indication: GASTRIC DISORDER
     Route: 065
  7. VIAGRA [Concomitant]
     Indication: ERECTILE DYSFUNCTION
     Route: 065
  8. CARBIDOPA AND LEVODOPA [Concomitant]
     Indication: PARKINSON'S DISEASE
     Route: 065
  9. NEXIUM [Concomitant]
     Indication: DYSPEPSIA
     Route: 065

REACTIONS (11)
  - AORTIC VALVE INCOMPETENCE [None]
  - ARTERIOSCLEROSIS [None]
  - BLOOD CHOLESTEROL INCREASED [None]
  - CHEST PAIN [None]
  - CONTUSION [None]
  - CORONARY ARTERY DISEASE [None]
  - DILATATION ATRIAL [None]
  - FALL [None]
  - JOINT SWELLING [None]
  - MYOCARDIAL INFARCTION [None]
  - ROTATOR CUFF SYNDROME [None]
